FAERS Safety Report 6551624-7 (Version None)
Quarter: 2010Q1

REPORT INFORMATION
  Report Type: 
  Country: None (occurrence: None)
  Receive Date: 20100120
  Receipt Date: 20100114
  Transmission Date: 20100710
  Serious: Yes (Death)
  Sender: FDA-Public Use
  Company Number: 2009US004389

PATIENT
  Age: 63 Year
  Sex: Female

DRUGS (6)
  1. PROGRAF [Suspect]
     Indication: RENAL TRANSPLANT
     Dosage: 0.5 MG, UID/QD, ORAL
     Route: 048
     Dates: start: 20090812, end: 20091204
  2. MYCOPHENOLIC ACID [Concomitant]
  3. LASIX [Concomitant]
  4. DIFLUCAN [Concomitant]
  5. PRILOSEC [Concomitant]
  6. AMIODARONE HCL [Concomitant]

REACTIONS (1)
  - HAEMOGLOBIN DECREASED [None]
